FAERS Safety Report 7675767-X (Version None)
Quarter: 2011Q3

REPORT INFORMATION
  Report Type: 
  Country: None (occurrence: None)
  Receive Date: 20110810
  Receipt Date: 20110801
  Transmission Date: 20111222
  Serious: Yes (Other)
  Sender: FDA-Public Use
  Company Number: US-ASTRAZENECA-2011SE44822

PATIENT
  Sex: Female

DRUGS (2)
  1. SEROQUEL [Suspect]
     Indication: MAJOR DEPRESSION
     Route: 048
     Dates: end: 20100101
  2. SEROQUEL [Suspect]
     Route: 048
     Dates: start: 20100101

REACTIONS (4)
  - WEIGHT INCREASED [None]
  - HYPERPHAGIA [None]
  - HUNGER [None]
  - HIRSUTISM [None]
